FAERS Safety Report 4563328-0 (Version None)
Quarter: 2005Q1

REPORT INFORMATION
  Report Type: 
  Country: None (occurrence: None)
  Receive Date: 20050128
  Receipt Date: 20040123
  Transmission Date: 20050727
  Serious: No
  Sender: FDA-Public Use
  Company Number: US-GLAXOSMITHKLINE-A0495030A

PATIENT
  Sex: Female

DRUGS (3)
  1. WELLBUTRIN [Suspect]
  2. OXYCONTIN [Concomitant]
  3. LEXAPRO [Concomitant]

REACTIONS (1)
  - AMENORRHOEA [None]
